FAERS Safety Report 5583921-6 (Version None)
Quarter: 2008Q1

REPORT INFORMATION
  Report Type: 
  Country: None (occurrence: None)
  Receive Date: 20080102
  Receipt Date: 20080102
  Transmission Date: 20080703
  Serious: Yes (Hospitalization)
  Sender: FDA-Public Use
  Company Number: None

PATIENT
  Age: 59 Year
  Sex: Male

DRUGS (2)
  1. ASPIRIN [Suspect]
     Indication: CEREBROVASCULAR ACCIDENT
     Dosage: 325MG   PO
     Route: 048
     Dates: start: 19991110, end: 20071206
  2. CLOPIDOGREL [Suspect]
     Indication: STENT PLACEMENT
     Dosage: 75MG  EVERY DAY  PO
     Route: 048
     Dates: start: 20031023, end: 20071206

REACTIONS (2)
  - FALL [None]
  - SUBDURAL HAEMATOMA [None]
